FAERS Safety Report 16877566 (Version 1)
Quarter: 2019Q4

REPORT INFORMATION
  Report Type: Spontaneous
  Country: US (occurrence: US)
  Receive Date: 20191002
  Receipt Date: 20191002
  Transmission Date: 20200122
  Serious: No
  Sender: FDA-Public Use
  Company Number: US-KYOWAKIRIN-2019BKK015118

PATIENT

DRUGS (1)
  1. CRYSVITA [Suspect]
     Active Substance: BUROSUMAB-TWZA
     Indication: PRODUCT USED FOR UNKNOWN INDICATION
     Dosage: 60 MG/ML
     Route: 065

REACTIONS (6)
  - Vomiting [Recovering/Resolving]
  - Blood phosphorus decreased [Recovering/Resolving]
  - Nausea [Recovering/Resolving]
  - Back pain [Recovering/Resolving]
  - Pain in extremity [Recovering/Resolving]
  - Headache [Recovering/Resolving]
